FAERS Safety Report 5177210-1 (Version None)
Quarter: 2006Q4

REPORT INFORMATION
  Report Type: 
  Country: None (occurrence: None)
  Receive Date: 20061218
  Receipt Date: 20061206
  Transmission Date: 20070319
  Serious: No
  Sender: FDA-Public Use
  Company Number: DE-ELI_LILLY_AND_COMPANY-DE200612001210

PATIENT
  Age: 69 Year
  Sex: Female

DRUGS (4)
  1. CYMBALTA [Suspect]
     Indication: DEPRESSION
     Dosage: UNK, DAILY (1/D)
     Route: 048
     Dates: start: 20050101
  2. CYMBALTA [Suspect]
     Dosage: 30 MG, EACH MORNING
     Route: 048
     Dates: start: 20060901
  3. DUROGESIC /DEN/ [Concomitant]
     Dosage: 50 UG, UNK
  4. FAVISTAN [Concomitant]

REACTIONS (4)
  - BLOOD CHOLESTEROL INCREASED [None]
  - CONSTIPATION [None]
  - HEPATIC ENZYME INCREASED [None]
  - INSOMNIA [None]
